FAERS Safety Report 16119474 (Version 1)
Quarter: 2019Q1

REPORT INFORMATION
  Report Type: Spontaneous
  Country: US (occurrence: US)
  Receive Date: 20190326
  Receipt Date: 20190326
  Transmission Date: 20190418
  Serious: Yes (Hospitalization, Other)
  Sender: FDA-Public Use
  Company Number: US-ASTRAZENECA-2019SE44427

PATIENT
  Sex: Male
  Weight: 93 kg

DRUGS (1)
  1. TUDORZA PRESSAIR [Suspect]
     Active Substance: ACLIDINIUM BROMIDE
     Indication: CHRONIC OBSTRUCTIVE PULMONARY DISEASE
     Dosage: 400 MCG ONE INHALATION IN THE MORNING AND ONE AT NIGHT
     Route: 055

REACTIONS (3)
  - Device malfunction [Unknown]
  - Cardiac disorder [Unknown]
  - Thrombosis [Recovering/Resolving]
